FAERS Safety Report 4917335-6 (Version None)
Quarter: 2006Q1

REPORT INFORMATION
  Report Type: 
  Country: None (occurrence: None)
  Receive Date: 20060221
  Receipt Date: 20050727
  Transmission Date: 20060701
  Serious: Yes (Hospitalization, Other)
  Sender: FDA-Public Use
  Company Number: US-MERCK-0507USA04166

PATIENT
  Age: 69 Year
  Sex: Female
  Weight: 61 kg

DRUGS (3)
  1. VIOXX [Suspect]
     Indication: OSTEOARTHRITIS
     Route: 048
     Dates: start: 19990923, end: 20040501
  2. VIOXX [Suspect]
     Route: 048
     Dates: start: 19990101, end: 20040501
  3. TENORMIN [Concomitant]
     Indication: HYPERTENSION
     Route: 048

REACTIONS (16)
  - ARTHROPATHY [None]
  - ASTHENIA [None]
  - BLINDNESS UNILATERAL [None]
  - BLOOD ACID PHOSPHATASE INCREASED [None]
  - BURSITIS [None]
  - CHOLELITHIASIS [None]
  - DYSPNOEA [None]
  - FATIGUE [None]
  - HIATUS HERNIA [None]
  - HIP ARTHROPLASTY [None]
  - HYPERTENSION [None]
  - KNEE ARTHROPLASTY [None]
  - PAPILLOEDEMA [None]
  - RASH MACULO-PAPULAR [None]
  - RETINAL ARTERY OCCLUSION [None]
  - SCOTOMA [None]
